FAERS Safety Report 7943814-3 (Version None)
Quarter: 2011Q4

REPORT INFORMATION
  Report Type: 
  Country: None (occurrence: None)
  Receive Date: 20111128
  Receipt Date: 20111121
  Transmission Date: 20120403
  Serious: Yes (Hospitalization, Other)
  Sender: FDA-Public Use
  Company Number: BE-ABBOTT-11P-013-0863944-00

PATIENT
  Sex: Female
  Weight: 40 kg

DRUGS (3)
  1. PROGESTERONE [Suspect]
     Route: 067
     Dates: start: 20110901
  2. PROGESTERONE [Suspect]
     Indication: LUTEAL PHASE DEFICIENCY
     Route: 067
     Dates: start: 20110401, end: 20110601
  3. PROGESTERONE [Suspect]
     Route: 067
     Dates: start: 20110601

REACTIONS (8)
  - UTERINE HYPERTONUS [None]
  - DRUG INEFFECTIVE [None]
  - BACK PAIN [None]
  - ESCHERICHIA INFECTION [None]
  - ABDOMINAL PAIN [None]
  - ECLAMPSIA [None]
  - PREMATURE SEPARATION OF PLACENTA [None]
  - HEADACHE [None]
